FAERS Safety Report 6993487-1 (Version None)
Quarter: 2010Q3

REPORT INFORMATION
  Report Type: 
  Country: None (occurrence: None)
  Receive Date: 20100917
  Receipt Date: 20100510
  Transmission Date: 20110219
  Serious: No
  Sender: FDA-Public Use
  Company Number: US-ASTRAZENECA-2010SE21506

PATIENT
  Age: 55 Year
  Sex: Female
  Weight: 86.2 kg

DRUGS (5)
  1. SEROQUEL XR [Suspect]
     Indication: PANIC ATTACK
     Route: 048
     Dates: start: 20070101
  2. SEROQUEL XR [Suspect]
     Route: 048
     Dates: start: 20070101
  3. TEGRETOL [Concomitant]
  4. TOFRANOL [Concomitant]
  5. XANAX [Concomitant]

REACTIONS (5)
  - DEPRESSED LEVEL OF CONSCIOUSNESS [None]
  - HANGOVER [None]
  - LETHARGY [None]
  - SOMNOLENCE [None]
  - WEIGHT INCREASED [None]
